FAERS Safety Report 20222723 (Version 3)
Quarter: 2022Q1

REPORT INFORMATION
  Report Type: Report from Study
  Country: US (occurrence: US)
  Receive Date: 20211223
  Receipt Date: 20220127
  Transmission Date: 20220423
  Serious: No
  Sender: FDA-Public Use
  Company Number: US-NOVARTISTESTPH-NVSC2021US294740

PATIENT
  Sex: Female

DRUGS (1)
  1. ENTRESTO [Suspect]
     Active Substance: SACUBITRIL\VALSARTAN
     Indication: Product used for unknown indication
     Dosage: UNK,(24/26 MG), BID
     Route: 048
     Dates: start: 202112

REACTIONS (6)
  - Depression [Unknown]
  - Throat clearing [Unknown]
  - Muscular weakness [Unknown]
  - Malaise [Unknown]
  - Pruritus [Recovered/Resolved]
  - Product dose omission issue [Unknown]
